FAERS Safety Report 25764411 (Version 1)
Quarter: 2025Q3

REPORT INFORMATION
  Report Type: Spontaneous
  Country: US (occurrence: US)
  Receive Date: 20250905
  Receipt Date: 20250905
  Transmission Date: 20251021
  Serious: No
  Sender: DOMPE FARMACEUTICI
  Company Number: US-FARMAPROD-202502-0432

PATIENT
  Sex: Female

DRUGS (7)
  1. OXERVATE [Suspect]
     Active Substance: CENEGERMIN-BKBJ
     Indication: Keratitis
     Route: 047
     Dates: start: 20250117
  2. CREXONT [Concomitant]
     Active Substance: CARBIDOPA\LEVODOPA
  3. INBRIJA [Concomitant]
     Active Substance: LEVODOPA
  4. AMANTADINE [Concomitant]
     Active Substance: AMANTADINE
  5. SIMVASTATIN [Concomitant]
     Active Substance: SIMVASTATIN
  6. ENTACAPONE [Concomitant]
     Active Substance: ENTACAPONE
  7. RASAGILINE MESYLATE [Concomitant]
     Active Substance: RASAGILINE MESYLATE

REACTIONS (2)
  - Drug ineffective [Unknown]
  - Adverse event [Unknown]
